FAERS Safety Report 5661347-4 (Version None)
Quarter: 2008Q1

REPORT INFORMATION
  Report Type: 
  Country: None (occurrence: None)
  Receive Date: 20080312
  Receipt Date: 20080226
  Transmission Date: 20080703
  Serious: Yes (Death)
  Sender: FDA-Public Use
  Company Number: US-TYCO HEALTHCARE/MALLINCKRODT-T200701510

PATIENT

DRUGS (1)
  1. METHADOSE [Suspect]
     Indication: PAIN
     Dates: start: 20051101, end: 20051101

REACTIONS (1)
  - DRUG TOXICITY [None]
